FAERS Safety Report 22281102 (Version 2)
Quarter: 2023Q2

REPORT INFORMATION
  Report Type: Report from Study
  Country: US (occurrence: US)
  Receive Date: 20230504
  Receipt Date: 20230515
  Transmission Date: 20230721
  Serious: Yes (Other)
  Sender: FDA-Public Use
  Company Number: US-ABBVIE-4750451

PATIENT
  Age: 43 Year
  Sex: Male

DRUGS (1)
  1. RINVOQ [Suspect]
     Active Substance: UPADACITINIB
     Indication: Product used for unknown indication
     Dosage: END DATE-2023
     Route: 048
     Dates: start: 20230320

REACTIONS (2)
  - Pulmonary embolism [Unknown]
  - Pericarditis [Recovering/Resolving]

NARRATIVE: CASE EVENT DATE: 20230401
